FAERS Safety Report 15332157 (Version 1)
Quarter: 2018Q3

REPORT INFORMATION
  Report Type: Spontaneous
  Country: US (occurrence: US)
  Receive Date: 20180824
  Receipt Date: 20180824
  Transmission Date: 20181010
  Serious: Yes (Life-Threatening)
  Sender: FDA-Public Use
  Company Number: None

PATIENT
  Age: 71 Year
  Sex: Female
  Weight: 102.79 kg

DRUGS (3)
  1. AMLODIPINE/VALSARTAN [Suspect]
     Active Substance: AMLODIPINE\VALSARTAN
  2. AMLODIPINE/VALSARTAN/HYDROCHLOROTHIAZIDE [Suspect]
     Active Substance: AMLODIPINE\HYDROCHLOROTHIAZIDE\VALSARTAN
     Indication: ESSENTIAL HYPERTENSION
     Route: 048
     Dates: start: 20110726, end: 20180817
  3. AMLODIPINE/OLMESARTAN MEDOXOMIL [Suspect]
     Active Substance: AMLODIPINE\OLMESARTAN

REACTIONS (2)
  - Pancreatic carcinoma metastatic [None]
  - Lymphoma [None]

NARRATIVE: CASE EVENT DATE: 20180817
